FAERS Safety Report 5338073-4 (Version None)
Quarter: 2007Q2

REPORT INFORMATION
  Report Type: 
  Country: None (occurrence: None)
  Receive Date: 20070530
  Receipt Date: 20070522
  Transmission Date: 20071010
  Serious: Yes (Hospitalization)
  Sender: FDA-Public Use
  Company Number: PHBS2007JP08652

PATIENT
  Age: 72 Year
  Sex: Female

DRUGS (4)
  1. HYALEIN [Concomitant]
  2. LIVOSTIN [Concomitant]
  3. CLARITIN [Concomitant]
  4. LAMISIL [Suspect]
     Indication: NAIL TINEA
     Dosage: 125 MG, UNK
     Route: 048
     Dates: start: 20060101, end: 20070515

REACTIONS (4)
  - DIZZINESS [None]
  - FALL [None]
  - GLYCOSYLATED HAEMOGLOBIN INCREASED [None]
  - MALAISE [None]
